FAERS Safety Report 7052181-1 (Version None)
Quarter: 2010Q4

REPORT INFORMATION
  Report Type: 
  Country: None (occurrence: None)
  Receive Date: 20101019
  Receipt Date: 20101018
  Transmission Date: 20110411
  Serious: Yes (Death)
  Sender: FDA-Public Use
  Company Number: CA-BRISTOL-MYERS SQUIBB COMPANY-15305246

PATIENT
  Age: 40 Year
  Sex: Female

DRUGS (2)
  1. ARIPIPRAZOLE [Suspect]
  2. OLANZAPINE [Suspect]

REACTIONS (1)
  - SUDDEN DEATH [None]
